FAERS Safety Report 6414436-0 (Version None)
Quarter: 2009Q4

REPORT INFORMATION
  Report Type: 
  Country: None (occurrence: None)
  Receive Date: 20091021
  Receipt Date: 20091006
  Transmission Date: 20100525
  Serious: Yes (Life-Threatening, Hospitalization)
  Sender: FDA-Public Use
  Company Number: IDA-00273

PATIENT
  Age: 22 Year
  Sex: Female

DRUGS (1)
  1. PROPRANOLOL [Suspect]
     Dosage: ORAL
     Route: 048

REACTIONS (4)
  - CARDIAC ARREST [None]
  - DRUG TOXICITY [None]
  - OVERDOSE [None]
  - SUICIDE ATTEMPT [None]
